FAERS Safety Report 6906356-X (Version None)
Quarter: 2010Q3

REPORT INFORMATION
  Report Type: 
  Country: None (occurrence: None)
  Receive Date: 20100804
  Receipt Date: 20100726
  Transmission Date: 20110219
  Serious: Yes (Hospitalization)
  Sender: FDA-Public Use
  Company Number: A0859792A

PATIENT
  Age: 75 Year
  Sex: Female

DRUGS (9)
  1. ADVAIR DISKUS 100/50 [Suspect]
     Indication: CHRONIC OBSTRUCTIVE PULMONARY DISEASE
     Dosage: 1PUFF TWICE PER DAY
     Route: 055
     Dates: start: 20020101
  2. ALBUTEROL SULATE [Concomitant]
  3. NORVASC [Concomitant]
  4. SPIRIVA [Concomitant]
  5. TEMAZEPAM [Concomitant]
  6. AEROSOL [Concomitant]
  7. DIAZIDE [Concomitant]
  8. ASPIRIN [Concomitant]
  9. NITROGLYCERIN [Concomitant]

REACTIONS (4)
  - COUGH [None]
  - MALAISE [None]
  - MEMORY IMPAIRMENT [None]
  - PNEUMONIA [None]
